FAERS Safety Report 22146521 (Version 1)
Quarter: 2023Q1

REPORT INFORMATION
  Report Type: Spontaneous
  Country: US (occurrence: None)
  Receive Date: 20230327
  Receipt Date: 20230327
  Transmission Date: 20230418
  Serious: Yes (Death)
  Sender: FDA-Public Use
  Company Number: None

PATIENT
  Age: 51 Year
  Sex: Male

DRUGS (1)
  1. EVEROLIMUS [Suspect]
     Active Substance: EVEROLIMUS
     Dosage: 5MG DAILY ORAL?
     Route: 048
     Dates: start: 20230301, end: 20230320

REACTIONS (2)
  - Renal cancer [None]
  - Malignant neoplasm progression [None]

NARRATIVE: CASE EVENT DATE: 20230320
